FAERS Safety Report 5059573-0 (Version None)
Quarter: 2006Q3

REPORT INFORMATION
  Report Type: 
  Country: None (occurrence: None)
  Receive Date: 20060718
  Receipt Date: 20060629
  Transmission Date: 20061208
  Serious: Yes (Hospitalization)
  Sender: FDA-Public Use
  Company Number: US200606006246

PATIENT
  Age: 76 Year
  Sex: Female

DRUGS (14)
  1. FORTEO [Suspect]
     Indication: OSTEOPOROSIS
     Dates: start: 20060601
  2. FORTEO [Concomitant]
  3. DIOVAN [Concomitant]
  4. EFFEXOR [Concomitant]
  5. TRANXENE [Concomitant]
  6. ASPIRIN TAB [Concomitant]
  7. ADVAIR DISKUS 100/50 [Concomitant]
  8. SPIRIVA [Concomitant]
  9. PANTOPRAZOLE SODIUM [Concomitant]
  10. XANAX [Concomitant]
  11. BENTYL [Concomitant]
  12. MILK OF MAGNESIA TAB [Concomitant]
  13. OXYGEN [Concomitant]
  14. FOSAMAX [Concomitant]

REACTIONS (8)
  - ABDOMINAL PAIN UPPER [None]
  - ADHESION [None]
  - AORTIC ANEURYSM [None]
  - DRUG DOSE OMISSION [None]
  - FUNGAL OESOPHAGITIS [None]
  - GASTRIC ULCER [None]
  - IRRITABLE BOWEL SYNDROME [None]
  - PHARMACEUTICAL PRODUCT COMPLAINT [None]
